FAERS Safety Report 9122811 (Version 4)
Quarter: 2013Q3

REPORT INFORMATION
  Report Type: Spontaneous
  Country: US (occurrence: US)
  Receive Date: 20130227
  Receipt Date: 20130910
  Transmission Date: 20140515
  Serious: Yes (Other)
  Sender: FDA-Public Use
  Company Number: 2013SP000561

PATIENT
  Age: 20 Year
  Sex: Female

DRUGS (3)
  1. LATUDA [Suspect]
     Indication: SCHIZOPHRENIA
     Route: 048
     Dates: start: 201202
  2. DEPAKOTE [Concomitant]
     Indication: SCHIZOPHRENIA
  3. CELEXA /01400501/ [Concomitant]
     Indication: SCHIZOPHRENIA

REACTIONS (2)
  - Physical assault [Recovered/Resolved]
  - Homicide [Recovered/Resolved]
